FAERS Safety Report 23275921 (Version 1)
Quarter: 2023Q4

REPORT INFORMATION
  Report Type: Spontaneous
  Country: FR (occurrence: FR)
  Receive Date: 20231208
  Receipt Date: 20231208
  Transmission Date: 20240109
  Serious: Yes (Other)
  Sender: FDA-Public Use
  Company Number: None

PATIENT
  Age: 29 Year
  Sex: Male
  Weight: 56 kg

DRUGS (4)
  1. MOXIFLOXACIN HYDROCHLORIDE [Suspect]
     Active Substance: MOXIFLOXACIN HYDROCHLORIDE\MOXIFLOXACIN HYDROCHLORIDE MONOHYDRATE
     Indication: Tuberculosis
     Dosage: 400 MG, QD
     Route: 048
     Dates: start: 20190115, end: 202008
  2. LINEZOLID [Suspect]
     Active Substance: LINEZOLID
     Indication: Tuberculosis
     Dosage: 600MG TWICE A DAY THEN 300MG A DAY
     Route: 048
     Dates: start: 20190115, end: 202008
  3. SIRTURO [Suspect]
     Active Substance: BEDAQUILINE FUMARATE
     Indication: Tuberculosis
     Dosage: 200 MG 3 TIMES A WEEK
     Route: 048
     Dates: start: 20190115, end: 202008
  4. LAMPRENE [Suspect]
     Active Substance: CLOFAZIMINE
     Indication: Tuberculosis
     Dosage: 100 MG, QD
     Route: 048
     Dates: start: 20190115, end: 202008

REACTIONS (2)
  - Hepatic cytolysis [Recovered/Resolved]
  - Hyperlactacidaemia [Recovered/Resolved]

NARRATIVE: CASE EVENT DATE: 20190403
